FAERS Safety Report 5488730-4 (Version None)
Quarter: 2007Q4

REPORT INFORMATION
  Report Type: 
  Country: None (occurrence: None)
  Receive Date: 20071017
  Receipt Date: 20071005
  Transmission Date: 20080405
  Serious: Yes (Other)
  Sender: FDA-Public Use
  Company Number: US-PFIZER INC-2007083952

PATIENT
  Sex: Female
  Weight: 55.909 kg

DRUGS (6)
  1. LYRICA [Suspect]
     Indication: FIBROMYALGIA
  2. FERROUS SULFATE TAB [Concomitant]
  3. CYMBALTA [Concomitant]
  4. METOPROLOL [Concomitant]
  5. AMBIEN [Concomitant]
  6. LEVOTHYROXINE SODIUM [Concomitant]

REACTIONS (7)
  - ASTHENIA [None]
  - DIZZINESS [None]
  - ENDOSCOPY [None]
  - FEELING ABNORMAL [None]
  - GASTRIC ULCER [None]
  - SOMNOLENCE [None]
  - WEIGHT INCREASED [None]
